FAERS Safety Report 7330678-4 (Version None)
Quarter: 2011Q1

REPORT INFORMATION
  Report Type: 
  Country: None (occurrence: None)
  Receive Date: 20110304
  Receipt Date: 20110208
  Transmission Date: 20110831
  Serious: No
  Sender: FDA-Public Use
  Company Number: US-B.I. PHARMACEUTICALS,INC./RIDGEFIELD-2010-BP-15318BP

PATIENT
  Sex: Female

DRUGS (14)
  1. ASPIRIN [Concomitant]
     Indication: PROPHYLAXIS
  2. ANTIHYPERTENSIVE [Concomitant]
     Indication: HYPERTENSION
  3. LASIX [Concomitant]
     Indication: CARDIAC FAILURE CONGESTIVE
  4. CRESTOR [Concomitant]
     Indication: BLOOD CHOLESTEROL INCREASED
  5. MUCINEX [Concomitant]
     Indication: HYPERSENSITIVITY
  6. MELATONIN [Concomitant]
     Indication: INSOMNIA
  7. ACTOS [Concomitant]
     Indication: DIABETES MELLITUS
  8. METFORMIN [Concomitant]
     Indication: DIABETES MELLITUS
  9. TRICOR [Concomitant]
     Indication: BLOOD CHOLESTEROL INCREASED
  10. NEXIUM [Concomitant]
     Indication: GASTROOESOPHAGEAL REFLUX DISEASE
  11. SPIRIVA [Suspect]
     Indication: ASTHMA
     Dosage: 18 MCG
     Route: 055
     Dates: start: 20060101
  12. INSULIN [Concomitant]
     Indication: DIABETES MELLITUS
  13. SINGULAIR [Concomitant]
     Indication: ASTHMA
  14. TRAZODONE [Concomitant]
     Indication: ANXIETY

REACTIONS (1)
  - DYSPNOEA [None]
